FAERS Safety Report 9322942 (Version 4)
Quarter: 2014Q1

REPORT INFORMATION
  Report Type: Spontaneous
  Country: US (occurrence: US)
  Receive Date: 20130601
  Receipt Date: 20140108
  Transmission Date: 20141002
  Serious: Yes (Hospitalization, Disabling)
  Sender: FDA-Public Use
  Company Number: US-ASTRAZENECA-2013SE38630

PATIENT
  Age: 54 Year
  Sex: Male
  Weight: 98.9 kg

DRUGS (25)
  1. NEXIUM [Suspect]
     Indication: GASTROOESOPHAGEAL REFLUX DISEASE
     Route: 048
     Dates: start: 20080223, end: 20090706
  2. NEXIUM [Suspect]
     Indication: GASTROOESOPHAGEAL REFLUX DISEASE
     Route: 048
     Dates: start: 20080406, end: 20090706
  3. NEXIUM [Suspect]
     Indication: GASTROOESOPHAGEAL REFLUX DISEASE
     Route: 048
     Dates: start: 20090706
  4. OMEPRAZOLE [Suspect]
     Indication: GASTROOESOPHAGEAL REFLUX DISEASE
     Route: 048
  5. OMEPRAZOLE [Suspect]
     Indication: GASTROOESOPHAGEAL REFLUX DISEASE
     Route: 048
     Dates: start: 20100621
  6. OMEPRAZOLE [Suspect]
     Indication: GASTROOESOPHAGEAL REFLUX DISEASE
     Route: 048
     Dates: start: 20110628
  7. PROTONIX [Concomitant]
     Route: 048
     Dates: start: 20090907, end: 20100520
  8. PROTONIX [Concomitant]
     Route: 048
     Dates: start: 20091223
  9. PREVACID [Concomitant]
  10. ZANTAC [Concomitant]
     Dates: start: 1992, end: 1998
  11. PEPCID [Concomitant]
  12. TUMS [Concomitant]
     Indication: GASTROOESOPHAGEAL REFLUX DISEASE
     Dates: start: 1992, end: 1998
  13. ALKA SELTZER [Concomitant]
     Indication: GASTROOESOPHAGEAL REFLUX DISEASE
     Dates: start: 1992
  14. PEPTO-BISMOL [Concomitant]
     Dates: start: 1992, end: 1998
  15. ROLAIDS [Concomitant]
  16. METFORMIN [Concomitant]
     Route: 048
     Dates: start: 20070504
  17. ADALAT [Concomitant]
     Route: 048
     Dates: start: 20070116
  18. SIMVASTATIN [Concomitant]
     Dates: start: 20060914
  19. SIMVASTATIN [Concomitant]
     Dates: start: 20100823
  20. BABY ASPIRIN [Concomitant]
     Route: 048
  21. PREVPAC [Concomitant]
     Dates: start: 20061106
  22. AZITHROMYCIN [Concomitant]
     Dates: start: 20070303
  23. VYTORIN [Concomitant]
     Dosage: 10/40
     Dates: start: 20070303
  24. LORTAB [Concomitant]
     Indication: PAIN
     Dosage: 7.5-500 MG, 1 Q 8 HOURS PRN
     Route: 048
     Dates: start: 20070303
  25. DIVALPROEX [Concomitant]
     Route: 048
     Dates: start: 20100108

REACTIONS (10)
  - Spinal fracture [Unknown]
  - Joint injury [Unknown]
  - Osteoarthritis [Unknown]
  - Cerebrovascular accident [Unknown]
  - Bone disorder [Unknown]
  - Osteoporosis [Unknown]
  - Multiple fractures [Unknown]
  - Cardiac disorder [Unknown]
  - Gait disturbance [Unknown]
  - Spinal osteoarthritis [Unknown]
